FAERS Safety Report 20580216 (Version 1)
Quarter: 2022Q1

REPORT INFORMATION
  Report Type: Report from Study
  Country: NL (occurrence: NL)
  Receive Date: 20220310
  Receipt Date: 20220310
  Transmission Date: 20220424
  Serious: Yes (Other)
  Sender: FDA-Public Use
  Company Number: NL-ABBVIE-21K-114-4153792-00

PATIENT
  Sex: Male

DRUGS (7)
  1. CARBIDOPA\LEVODOPA [Suspect]
     Active Substance: CARBIDOPA\LEVODOPA
     Indication: Parkinson^s disease
     Route: 050
     Dates: start: 20200109
  2. CARBIDOPA\LEVODOPA [Suspect]
     Active Substance: CARBIDOPA\LEVODOPA
     Dosage: END: 3.0ML, CND: 4.2ML/H
     Route: 050
  3. CARBIDOPA\LEVODOPA [Suspect]
     Active Substance: CARBIDOPA\LEVODOPA
     Dosage: MD: 6.5 ML, CD: 5.1 ML/H, ED: 2.8 ML, CND: 4.2 ML/H
     Route: 050
  4. CARBIDOPA\LEVODOPA [Suspect]
     Active Substance: CARBIDOPA\LEVODOPA
     Dosage: MD: 7.5 ML, CD: 5.3 ML/H, ED: 2.8 ML, CND: 4.4 ML/H, END: 3.0ML
     Route: 050
  5. CARBIDOPA\LEVODOPA [Suspect]
     Active Substance: CARBIDOPA\LEVODOPA
     Dosage: CND: 4.6 ML/H, END: 3.0 ML
     Route: 050
  6. NEUPRO [Concomitant]
     Active Substance: ROTIGOTINE
     Indication: Product used for unknown indication
     Dates: end: 2021
  7. DESMOPRESSIN [Concomitant]
     Active Substance: DESMOPRESSIN
     Indication: Product used for unknown indication

REACTIONS (21)
  - Cataract [Not Recovered/Not Resolved]
  - Underdose [Unknown]
  - Restlessness [Recovering/Resolving]
  - Motor dysfunction [Unknown]
  - Cystitis bacterial [Not Recovered/Not Resolved]
  - On and off phenomenon [Unknown]
  - Loss of personal independence in daily activities [Not Recovered/Not Resolved]
  - Muscle spasms [Not Recovered/Not Resolved]
  - Abnormal dreams [Recovering/Resolving]
  - Muscle rigidity [Unknown]
  - Unevaluable event [Recovered/Resolved]
  - Drug ineffective [Not Recovered/Not Resolved]
  - Therapeutic product effect incomplete [Not Recovered/Not Resolved]
  - Hallucination [Recovering/Resolving]
  - Reading disorder [Recovering/Resolving]
  - Dyskinesia [Not Recovered/Not Resolved]
  - Nocturia [Recovering/Resolving]
  - Unevaluable event [Not Recovered/Not Resolved]
  - General physical health deterioration [Recovering/Resolving]
  - Urinary tract infection [Recovered/Resolved]
  - Hearing aid user [Not Recovered/Not Resolved]

NARRATIVE: CASE EVENT DATE: 20210101
